APPROVED DRUG PRODUCT: DICLOFENAC SODIUM
Active Ingredient: DICLOFENAC SODIUM
Strength: 75MG
Dosage Form/Route: TABLET, DELAYED RELEASE;ORAL
Application: A219945 | Product #003 | TE Code: AB
Applicant: UMEDICA LABORATORIES PRIVATE LTD
Approved: Nov 5, 2025 | RLD: No | RS: No | Type: RX